FAERS Safety Report 6354442-8 (Version None)
Quarter: 2009Q3

REPORT INFORMATION
  Report Type: 
  Country: None (occurrence: None)
  Receive Date: 20090909
  Receipt Date: 20090825
  Transmission Date: 20100115
  Serious: Yes (Disabling)
  Sender: FDA-Public Use
  Company Number: 001656

PATIENT
  Sex: Female
  Weight: 66.3 kg

DRUGS (4)
  1. ROTIGOTINE [Suspect]
     Indication: PARKINSON'S DISEASE
     Dosage: (4 MG QD TRANSDERMAL)
     Route: 062
     Dates: start: 20080201, end: 20080301
  2. SINEMET [Concomitant]
  3. AMANTADINE HCL [Concomitant]
  4. COMTAN [Concomitant]

REACTIONS (7)
  - CONDITION AGGRAVATED [None]
  - DYSKINESIA [None]
  - DYSPHONIA [None]
  - GASTROOESOPHAGEAL REFLUX DISEASE [None]
  - NO THERAPEUTIC RESPONSE [None]
  - VOMITING [None]
  - WHEELCHAIR USER [None]
